FAERS Safety Report 6237140-0 (Version None)
Quarter: 2009Q2

REPORT INFORMATION
  Report Type: 
  Country: None (occurrence: None)
  Receive Date: 20090619
  Receipt Date: 20090423
  Transmission Date: 20091009
  Serious: No
  Sender: FDA-Public Use
  Company Number: US-ASTRAZENECA-2009UW10248

PATIENT
  Sex: Male

DRUGS (1)
  1. SYMBICORT [Suspect]
     Dosage: 160/4.5 MCG 2 PUFFS
     Route: 055
     Dates: start: 20090417

REACTIONS (2)
  - CHEST PAIN [None]
  - DRUG INEFFECTIVE [None]
